FAERS Safety Report 5121583-2 (Version None)
Quarter: 2006Q4

REPORT INFORMATION
  Report Type: 
  Country: None (occurrence: None)
  Receive Date: 20061003
  Receipt Date: 20060915
  Transmission Date: 20070319
  Serious: Yes (Life-Threatening, Hospitalization)
  Sender: FDA-Public Use
  Company Number: 2006-144979-NL

PATIENT
  Age: 69 Year
  Sex: Male

DRUGS (9)
  1. DANAPAROID SODIUM [Suspect]
     Indication: DISSEMINATED INTRAVASCULAR COAGULATION
     Dosage: 2500 ANTI_XA; INTRAVENOUS (NOS)
     Route: 041
     Dates: start: 20060501, end: 20060510
  2. ENOXAPARIN SODIUM [Concomitant]
  3. DEXPANTHENOL [Concomitant]
  4. ALPROSTADIL [Concomitant]
  5. MEROPENEM [Concomitant]
  6. MINOPHAGEN C [Concomitant]
  7. VANCOMYCIN [Concomitant]
  8. HEPARIN SODIUM [Concomitant]
  9. WARFARIN SODIUM [Concomitant]

REACTIONS (7)
  - ACTIVATED PARTIAL THROMBOPLASTIN TIME PROLONGED [None]
  - HAEMATOMA [None]
  - HAEMORRHAGIC DIATHESIS [None]
  - HENOCH-SCHONLEIN PURPURA [None]
  - HEPATIC FUNCTION ABNORMAL [None]
  - RENAL DISORDER [None]
  - STAPHYLOCOCCAL INFECTION [None]
